FAERS Safety Report 20658344 (Version 8)
Quarter: 2023Q2

REPORT INFORMATION
  Report Type: Report from Study
  Country: AU (occurrence: None)
  Receive Date: 20220331
  Receipt Date: 20230620
  Transmission Date: 20230721
  Serious: Yes (Hospitalization)
  Sender: FDA-Public Use
  Company Number: AU-Eisai Medical Research-EC-2022-111238

PATIENT
  Age: 69 Year
  Sex: Male
  Weight: 77.4 kg

DRUGS (11)
  1. LENVATINIB [Suspect]
     Active Substance: LENVATINIB
     Indication: Clear cell renal cell carcinoma
     Route: 048
     Dates: start: 20220302, end: 20220315
  2. LENVATINIB [Suspect]
     Active Substance: LENVATINIB
     Route: 048
     Dates: start: 20220323, end: 20220410
  3. LENVATINIB [Suspect]
     Active Substance: LENVATINIB
     Route: 048
     Dates: start: 20220509, end: 20220614
  4. LENVATINIB [Suspect]
     Active Substance: LENVATINIB
     Route: 048
     Dates: start: 20220704, end: 20220724
  5. PEMBROLIZUMAB [Suspect]
     Active Substance: PEMBROLIZUMAB
     Indication: Clear cell renal cell carcinoma
     Route: 041
     Dates: start: 20220302, end: 20220302
  6. PEMBROLIZUMAB [Suspect]
     Active Substance: PEMBROLIZUMAB
     Route: 041
     Dates: start: 20220411
  7. BELZUTIFAN [Suspect]
     Active Substance: BELZUTIFAN
     Indication: Clear cell renal cell carcinoma
     Route: 048
     Dates: start: 20220302, end: 20220315
  8. BELZUTIFAN [Suspect]
     Active Substance: BELZUTIFAN
     Route: 048
     Dates: start: 20220323
  9. COLCHICINE [Concomitant]
     Active Substance: COLCHICINE
     Dates: start: 20120101, end: 20220411
  10. SERTRALINE HYDROCHLORIDE [Concomitant]
     Active Substance: SERTRALINE HYDROCHLORIDE
     Dates: start: 20060101, end: 20220411
  11. IRBESARTAN [Concomitant]
     Active Substance: IRBESARTAN
     Dates: start: 20060101, end: 20220411

REACTIONS (2)
  - Confusional state [Recovered/Resolved]
  - Fatigue [Not Recovered/Not Resolved]

NARRATIVE: CASE EVENT DATE: 20220303
